FAERS Safety Report 15529487 (Version 1)
Quarter: 2018Q4

REPORT INFORMATION
  Report Type: Spontaneous
  Country: SE (occurrence: SE)
  Receive Date: 20181020
  Receipt Date: 20181020
  Transmission Date: 20190205
  Serious: Yes (Hospitalization)
  Sender: FDA-Public Use
  Company Number: SE-ACCORD-078934

PATIENT
  Age: 55 Year
  Sex: Male

DRUGS (13)
  1. NULOJIX [Concomitant]
     Active Substance: BELATACEPT
  2. ARANESP [Concomitant]
     Active Substance: DARBEPOETIN ALFA
  3. TROMBYL [Concomitant]
     Active Substance: ASPIRIN
  4. KALCIPOS [Concomitant]
     Active Substance: CALCIUM CARBONATE
  5. MYCOPHENOLIC ACID. [Suspect]
     Active Substance: MYCOPHENOLIC ACID
     Indication: RENAL TRANSPLANT
     Dosage: 1000 MG FROM 27-MAY-2014 TO 29-DEC-2015
     Dates: start: 20160617, end: 20170825
  6. DOXAZOSIN [Concomitant]
     Active Substance: DOXAZOSIN\DOXAZOSIN MESYLATE
  7. STERCULIA GUM [Concomitant]
  8. FELODIPINE. [Concomitant]
     Active Substance: FELODIPINE
  9. BEHEPAN [Concomitant]
     Active Substance: HYDROXOCOBALAMIN
  10. ETALPHA [Concomitant]
     Active Substance: ALFACALCIDOL
  11. PREDNISOLONE. [Concomitant]
     Active Substance: PREDNISOLONE
  12. FOLACIN [Concomitant]
  13. FURIX [Concomitant]
     Active Substance: FUROSEMIDE

REACTIONS (3)
  - Vomiting [Recovered/Resolved]
  - Impaired gastric emptying [Recovered/Resolved]
  - Diarrhoea [Recovered/Resolved]

NARRATIVE: CASE EVENT DATE: 201703
